FAERS Safety Report 5045051-1 (Version None)
Quarter: 2006Q3

REPORT INFORMATION
  Report Type: 
  Country: None (occurrence: None)
  Receive Date: 20060705
  Receipt Date: 20060612
  Transmission Date: 20061208
  Serious: Yes (Other)
  Sender: FDA-Public Use
  Company Number: US200606002842

PATIENT
  Age: 83 Year
  Sex: 0

DRUGS (1)
  1. EVISTA [Suspect]
     Dosage: OTHER, ORAL
     Route: 048

REACTIONS (1)
  - FRACTURE [None]
